FAERS Safety Report 11442534 (Version 1)
Quarter: 2015Q3

REPORT INFORMATION
  Report Type: Spontaneous
  Country: US (occurrence: US)
  Receive Date: 20150901
  Receipt Date: 20150901
  Transmission Date: 20151125
  Serious: No
  Sender: FDA-Public Use
  Company Number: US-009507513-1508USA011120

PATIENT
  Age: 30 Year
  Sex: Female
  Weight: 90.7 kg

DRUGS (1)
  1. IMPLANON [Suspect]
     Active Substance: ETONOGESTREL
     Indication: CONTRACEPTION
     Dosage: UNK
     Route: 059
     Dates: start: 20121007, end: 20150608

REACTIONS (3)
  - Hypomenorrhoea [Unknown]
  - Metrorrhagia [Unknown]
  - Adverse event [Unknown]

NARRATIVE: CASE EVENT DATE: 2014
